FAERS Safety Report 10621587 (Version 1)
Quarter: 2014Q4

REPORT INFORMATION
  Report Type: Spontaneous
  Country: US (occurrence: None)
  Receive Date: 20141126
  Receipt Date: 20141126
  Transmission Date: 20150529
  Serious: Yes (Disabling)
  Sender: FDA-Public Use
  Company Number: None

PATIENT
  Age: 38 Year
  Sex: Male
  Weight: 70.31 kg

DRUGS (1)
  1. VIAGRA [Suspect]
     Active Substance: SILDENAFIL CITRATE
     Indication: ERECTILE DYSFUNCTION
     Dosage: 1
     Route: 048
     Dates: start: 20140122, end: 20140122

REACTIONS (3)
  - Hypoacusis [None]
  - Tinnitus [None]
  - Feeling of despair [None]

NARRATIVE: CASE EVENT DATE: 20140122
